FAERS Safety Report 8306008-8 (Version None)
Quarter: 2012Q1

REPORT INFORMATION
  Report Type: 
  Country: None (occurrence: None)
  Receive Date: 20120326
  Receipt Date: 20110505
  Transmission Date: 20120608
  Serious: Yes (Hospitalization)
  Sender: FDA-Public Use
  Company Number: PHHY2011US41969

PATIENT
  Age: 78 Year
  Sex: Male
  Weight: 70.7 kg

DRUGS (9)
  1. PRILOSEC (OMEPRAZOLE) CAPSULE [Concomitant]
  2. ASPIRIN [Concomitant]
  3. ZOCOR [Concomitant]
  4. MULTI-VITAMINS [Concomitant]
  5. ALLOPURINOL (ALLOPURINOL) INJECTION [Concomitant]
  6. TASIGNA [Suspect]
     Dosage: 400 MG, BID, ORAL
     Route: 048
  7. COZAAR [Concomitant]
  8. CELEBREX [Concomitant]
  9. CARDIZEM (DILTIAZEM HYDROCHLORIDE) TABLET [Concomitant]

REACTIONS (2)
  - HEART RATE IRREGULAR [None]
  - CHEST PAIN [None]
